FAERS Safety Report 5154382-6 (Version None)
Quarter: 2006Q4

REPORT INFORMATION
  Report Type: 
  Country: None (occurrence: None)
  Receive Date: 20061114
  Receipt Date: 20061101
  Transmission Date: 20070319
  Serious: Yes (Hospitalization)
  Sender: FDA-Public Use
  Company Number: 2006133020

PATIENT
  Age: 75 Year
  Sex: Male

DRUGS (3)
  1. CARDURA XL (EXTENDED RELEASE) (DOXAZOSIN) [Suspect]
     Indication: BENIGN PROSTATIC HYPERPLASIA
     Dosage: 4 MG (4 MG, 1 IN 1 D), ORAL
     Route: 048
     Dates: start: 20060801, end: 20061001
  2. ASPIRIN [Concomitant]
  3. TOBRADEX [Concomitant]

REACTIONS (2)
  - EYE OPERATION [None]
  - LACRIMATION INCREASED [None]
